FAERS Safety Report 6130962-6 (Version None)
Quarter: 2009Q1

REPORT INFORMATION
  Report Type: 
  Country: None (occurrence: None)
  Receive Date: 20090325
  Receipt Date: 20090310
  Transmission Date: 20090719
  Serious: Yes (Death)
  Sender: FDA-Public Use
  Company Number: NL-PFIZER INC-2005165742

PATIENT

DRUGS (6)
  1. PREGABALIN [Suspect]
     Indication: NEURALGIA
     Route: 048
     Dates: start: 20051026, end: 20051110
  2. PREGABALIN [Suspect]
     Indication: NEUROPATHY PERIPHERAL
  3. MEBEVERINE [Concomitant]
     Route: 048
     Dates: start: 20040701
  4. LORMETAZEPAM [Concomitant]
     Route: 048
  5. PANTOPRAZOLE SODIUM [Concomitant]
     Route: 048
     Dates: start: 20040701
  6. MIRTAZAPINE [Concomitant]
     Route: 048
     Dates: start: 20051010

REACTIONS (2)
  - CHEST PAIN [None]
  - SUDDEN DEATH [None]
